FAERS Safety Report 8186220-1 (Version None)
Quarter: 2012Q1

REPORT INFORMATION
  Report Type: 
  Country: None (occurrence: None)
  Receive Date: 20120306
  Receipt Date: 20120228
  Transmission Date: 20120608
  Serious: No
  Sender: FDA-Public Use
  Company Number: US-PFIZER INC-2012035797

PATIENT
  Sex: Female
  Weight: 58.957 kg

DRUGS (12)
  1. NIFEDIPINE [Concomitant]
     Indication: HYPERTENSION
  2. PROCARDIA XL [Concomitant]
     Dosage: UNK
     Dates: start: 20120105, end: 20120207
  3. NORVASC [Suspect]
     Indication: HYPERTENSION
     Dosage: 5 MG, DAILY
     Route: 048
     Dates: start: 20111201, end: 20111201
  4. AMLODIPINE BESYLATE [Suspect]
     Indication: HYPERTENSION
     Dosage: 2.5 MG, DAILY
     Route: 048
     Dates: start: 20120207, end: 20120208
  5. SYNTHROID [Concomitant]
     Indication: HYPOTHYROIDISM
     Dosage: 100 UG, DAILY
  6. XANAX [Concomitant]
     Dosage: UNK
  7. PROCARDIA XL [Concomitant]
     Indication: HYPERTENSION
     Dosage: UNK
     Dates: start: 19900101, end: 20111101
  8. PREMARIN [Concomitant]
     Dosage: 0.3 MG, DAILY
  9. NEXIUM [Concomitant]
     Dosage: 40 MG, UNK
  10. DIOVAN [Concomitant]
     Dosage: 160 MG, DAILY
  11. PROPRANOLOL [Concomitant]
     Dosage: UNK
  12. PROCARDIA XL [Concomitant]
     Dosage: UNK
     Dates: start: 20120208

REACTIONS (5)
  - FEELING ABNORMAL [None]
  - CHEST DISCOMFORT [None]
  - NERVOUSNESS [None]
  - DRUG INEFFECTIVE [None]
  - HYPOAESTHESIA [None]
